FAERS Safety Report 11001760 (Version 1)
Quarter: 2015Q2

REPORT INFORMATION
  Report Type: Report from Study
  Country: FR (occurrence: FR)
  Receive Date: 20150408
  Receipt Date: 20150408
  Transmission Date: 20150821
  Serious: Yes (Other)
  Sender: FDA-Public Use
  Company Number: FR-BAYER-2015-090592

PATIENT
  Age: 26 Year
  Sex: Female

DRUGS (3)
  1. BETAMETHASONE [Concomitant]
     Active Substance: BETAMETHASONE
  2. SALBUTAMOL [Suspect]
     Active Substance: ALBUTEROL
     Indication: TOCOLYSIS
     Dosage: UNK
  3. NIFEDIPINE. [Suspect]
     Active Substance: NIFEDIPINE
     Indication: TOCOLYSIS
     Dosage: 20 MG, TID
     Route: 048

REACTIONS (4)
  - Acute pulmonary oedema [None]
  - Product use issue [None]
  - Respiratory distress [None]
  - Exposure during pregnancy [None]
